FAERS Safety Report 9033728 (Version 1)
Quarter: 2013Q1

REPORT INFORMATION
  Report Type: Spontaneous
  Country: CA (occurrence: CA)
  Receive Date: 20130128
  Receipt Date: 20130128
  Transmission Date: 20140127
  Serious: Yes (Other)
  Sender: FDA-Public Use
  Company Number: CA-AMGEN-CANSP2012076234

PATIENT
  Age: 48 Year
  Sex: Female

DRUGS (1)
  1. ENBREL [Suspect]
     Indication: RHEUMATOID ARTHRITIS
     Dosage: UNK
     Dates: start: 20120709

REACTIONS (4)
  - Palpitations [Recovered/Resolved]
  - Heart rate irregular [Recovered/Resolved]
  - Electrocardiogram abnormal [Recovered/Resolved]
  - Chest pain [Recovered/Resolved]
